FAERS Safety Report 10010582 (Version 24)
Quarter: 2017Q1

REPORT INFORMATION
  Report Type: Report from Study
  Country: DE (occurrence: DE)
  Receive Date: 20140314
  Receipt Date: 20170110
  Transmission Date: 20170428
  Serious: Yes (Life-Threatening, Hospitalization)
  Sender: FDA-Public Use
  Company Number: DE-ROCHE-1354830

PATIENT
  Age: 64 Year
  Sex: Female
  Weight: 72 kg

DRUGS (37)
  1. FENISTIL (GERMANY) [Concomitant]
     Indication: PROPHYLAXIS
     Route: 042
     Dates: start: 20140120, end: 20140217
  2. PANTOPRAZOL [Concomitant]
     Active Substance: PANTOPRAZOLE SODIUM
     Route: 048
     Dates: start: 20140203, end: 20140313
  3. AMLODIPIN [Concomitant]
     Active Substance: AMLODIPINE BESYLATE
     Route: 048
     Dates: start: 20140203, end: 20140227
  4. L-THYROXIN [Concomitant]
     Active Substance: LEVOTHYROXINE SODIUM
     Route: 048
     Dates: start: 20140108, end: 20140313
  5. FENISTIL (GERMANY) [Concomitant]
     Dosage: SINGLE DOSE
     Route: 042
     Dates: start: 20140217, end: 20140217
  6. PENTAGLOBIN [Concomitant]
     Active Substance: HUMAN IMMUNOGLOBULIN G
     Route: 042
     Dates: start: 20140221, end: 20140227
  7. DIHYDROTACHYSTEROL [Concomitant]
     Active Substance: DIHYDROTACHYSTEROL
     Dosage: 10 PEARLS, SINGLE DOSE
     Route: 048
     Dates: start: 20140108, end: 20140313
  8. LOSFERRON [Concomitant]
     Dosage: 2 EFFERVESCENT TABLET
     Route: 048
     Dates: start: 20140108
  9. LOSFERRON [Concomitant]
     Dosage: 2 EFFERVESCENT TABLET
     Route: 065
     Dates: start: 20140218
  10. FASTURTEC [Concomitant]
     Active Substance: RASBURICASE
     Indication: PROPHYLAXIS
     Route: 042
     Dates: start: 20140120, end: 20140217
  11. OBINUTUZUMAB [Suspect]
     Active Substance: OBINUTUZUMAB
     Indication: CHRONIC LYMPHOCYTIC LEUKAEMIA
     Dosage: C1D1?DATE OF LAST DOSE PRIOR TO SAE (PANCYTOPENIA): 20/JAN/2014.?DATE OF LAST DOSE PRIOR TO SAE (SEP
     Route: 042
     Dates: start: 20140120
  12. INTRATECT [Concomitant]
     Active Substance: HUMAN IMMUNOGLOBULIN G
     Route: 042
     Dates: start: 20110926
  13. SULFAMETHOXAZOLE/TRIMETHOPRIM [Concomitant]
     Active Substance: SULFAMETHOXAZOLE\TRIMETHOPRIM
     Route: 048
     Dates: start: 20140120
  14. NEULASTA [Concomitant]
     Active Substance: PEGFILGRASTIM
     Route: 058
     Dates: start: 20140123, end: 20140123
  15. FERRITIN [Concomitant]
     Active Substance: FERRITIN
     Dosage: 2 EFFERVESCENT TABLET
     Route: 048
     Dates: start: 20140108, end: 20140313
  16. ASPIRIN. [Concomitant]
     Active Substance: ASPIRIN
     Route: 048
     Dates: start: 20140203
  17. SIMVASTATIN. [Concomitant]
     Active Substance: SIMVASTATIN
     Route: 048
     Dates: start: 20140203, end: 20140313
  18. COTRIM FORTE [Concomitant]
     Active Substance: SULFAMETHOXAZOLE\TRIMETHOPRIM
     Route: 048
     Dates: start: 20140120, end: 20140217
  19. PREDNISOLONE. [Concomitant]
     Active Substance: PREDNISOLONE
     Dosage: SINGLE DOSE
     Route: 042
     Dates: start: 20140217, end: 20140217
  20. ATACAND [Concomitant]
     Active Substance: CANDESARTAN CILEXETIL
     Route: 065
     Dates: start: 20140218
  21. DIHYDROTACHYSTEROL [Concomitant]
     Active Substance: DIHYDROTACHYSTEROL
     Route: 065
     Dates: start: 20140218
  22. RANITIC [Concomitant]
     Active Substance: RANITIDINE HYDROCHLORIDE
     Dosage: SINGLE DOSE
     Route: 042
     Dates: start: 20140217, end: 20140217
  23. INTRATECT [Concomitant]
     Active Substance: HUMAN IMMUNOGLOBULIN G
     Route: 042
     Dates: start: 20140108, end: 20140313
  24. RANITIDIN [Concomitant]
     Active Substance: RANITIDINE HYDROCHLORIDE
     Indication: PROPHYLAXIS
     Route: 042
     Dates: start: 20140120, end: 20140217
  25. PARACETAMOL [Concomitant]
     Active Substance: ACETAMINOPHEN
     Indication: PROPHYLAXIS
     Route: 048
     Dates: start: 20140120, end: 20140217
  26. NEULASTA [Concomitant]
     Active Substance: PEGFILGRASTIM
     Route: 058
     Dates: start: 20140131, end: 20140131
  27. VALSARTAN. [Concomitant]
     Active Substance: VALSARTAN
     Route: 048
     Dates: start: 20140108, end: 20140227
  28. PREDNISOLONE. [Concomitant]
     Active Substance: PREDNISOLONE
     Route: 042
     Dates: start: 20140120, end: 20140217
  29. ATACAND [Concomitant]
     Active Substance: CANDESARTAN CILEXETIL
     Route: 048
     Dates: start: 20140108, end: 20140313
  30. ONDANSETRON [Concomitant]
     Active Substance: ONDANSETRON
     Route: 042
     Dates: start: 20140121, end: 20140217
  31. E153 [Concomitant]
     Route: 042
     Dates: start: 20140120, end: 20140217
  32. PENTACARINAT [Concomitant]
     Active Substance: PENTAMIDINE ISETHIONATE
     Dosage: SINGLE DOSE
     Route: 045
     Dates: start: 20140213, end: 20140213
  33. OBINUTUZUMAB [Suspect]
     Active Substance: OBINUTUZUMAB
     Dosage: DATE OF LAST DOSE PRIOR TO SAE (PANCYTOPENIA): 20/JAN/2014.?DATE OF LAST DOSE PRIOR TO SAE (SEPSIS):
     Route: 042
     Dates: start: 20140218
  34. BENDAMUSTINE [Suspect]
     Active Substance: BENDAMUSTINE
     Indication: CHRONIC LYMPHOCYTIC LEUKAEMIA
     Dosage: ONLY DOSE PRIOR TO SAES. ?DOSE AND FREQUENCY AS PER PROTOCOL.
     Route: 042
     Dates: start: 20140120, end: 20140120
  35. L-THYROXIN [Concomitant]
     Active Substance: LEVOTHYROXINE SODIUM
     Route: 065
     Dates: start: 20140218
  36. E153 [Concomitant]
     Dosage: SINGLE DOSE
     Route: 042
     Dates: start: 20140217, end: 20140217
  37. FLUCONAZOL [Concomitant]
     Active Substance: FLUCONAZOLE
     Route: 065
     Dates: start: 20140122, end: 20140203

REACTIONS (2)
  - Pancytopenia [Recovered/Resolved]
  - Sepsis [Recovered/Resolved]

NARRATIVE: CASE EVENT DATE: 20140120
